FAERS Safety Report 10346354 (Version 2)
Quarter: 2014Q4

REPORT INFORMATION
  Report Type: Spontaneous
  Country: JP (occurrence: JP)
  Receive Date: 20140728
  Receipt Date: 20141112
  Transmission Date: 20150528
  Serious: Yes (Hospitalization, Other)
  Sender: FDA-Public Use
  Company Number: PHHY2013JP158963

PATIENT
  Age: 39 Year
  Sex: Male

DRUGS (2)
  1. TASIGNA [Suspect]
     Active Substance: NILOTINIB
     Indication: CHRONIC MYELOID LEUKAEMIA
     Dosage: 800 MG, QD
     Route: 065
     Dates: start: 20110406, end: 20120904
  2. TASIGNA [Suspect]
     Active Substance: NILOTINIB
     Dosage: 800 MG, QD
     Dates: start: 20130508, end: 20130522

REACTIONS (4)
  - Gene mutation [Recovered/Resolved]
  - Deafness [Recovered/Resolved]
  - Paralysis [Recovered/Resolved]
  - Blast crisis in myelogenous leukaemia [Not Recovered/Not Resolved]

NARRATIVE: CASE EVENT DATE: 20120305
